FAERS Safety Report 4325401-1 (Version None)
Quarter: 2004Q1

REPORT INFORMATION
  Report Type: 
  Country: None (occurrence: None)
  Receive Date: 20040324
  Receipt Date: 20040315
  Transmission Date: 20041129
  Serious: Yes (Life-Threatening)
  Sender: FDA-Public Use
  Company Number: 200410808GDS

PATIENT
  Age: 81 Year
  Sex: Male

DRUGS (10)
  1. CIPROFLOXACIN [Suspect]
     Dosage: 750 MG, TOTAL DAILY, INTRAVENOUS
     Route: 042
     Dates: start: 20040205, end: 20040212
  2. RIFADIN [Concomitant]
  3. LASIX [Concomitant]
  4. TRIATEC [Concomitant]
  5. ASPIRINETTA [Concomitant]
  6. NEURONTIN [Concomitant]
  7. ZYLORIC [Concomitant]
  8. IBUPROFEN [Concomitant]
  9. DURAGESIC [Concomitant]
  10. PANTECTA [Concomitant]

REACTIONS (1)
  - TORSADE DE POINTES [None]
